FAERS Safety Report 8525332-7 (Version None)
Quarter: 2012Q3

REPORT INFORMATION
  Report Type: 
  Country: None (occurrence: None)
  Receive Date: 20120720
  Receipt Date: 20120718
  Transmission Date: 20120928
  Serious: Yes (Other)
  Sender: FDA-Public Use
  Company Number: PHFR2012GB003324

PATIENT
  Sex: Male

DRUGS (2)
  1. CLOZARIL [Suspect]
     Route: 048
     Dates: start: 20120110
  2. QUETIAPINE [Concomitant]
     Dosage: UNK UKN, UNK

REACTIONS (3)
  - NEUTROPHIL COUNT DECREASED [None]
  - MENTAL IMPAIRMENT [None]
  - WHITE BLOOD CELL COUNT DECREASED [None]
